FAERS Safety Report 9370297 (Version 2)
Quarter: 2013Q4

REPORT INFORMATION
  Report Type: Spontaneous
  Country: ES (occurrence: ES)
  Receive Date: 20130626
  Receipt Date: 20131121
  Transmission Date: 20140711
  Serious: No
  Sender: FDA-Public Use
  Company Number: ES-ACTELION-A-CH2013-84771

PATIENT
  Age: 35 Year
  Sex: Female

DRUGS (1)
  1. TRACLEER [Suspect]
     Indication: THROMBOANGIITIS OBLITERANS
     Dosage: UNK MG, UNK
     Route: 048

REACTIONS (1)
  - Pregnancy [Unknown]
